FAERS Safety Report 21135978 (Version 1)
Quarter: 2022Q3

REPORT INFORMATION
  Report Type: Report from Study
  Country: IT (occurrence: IT)
  Receive Date: 20220727
  Receipt Date: 20220727
  Transmission Date: 20221027
  Serious: Yes (Hospitalization)
  Sender: FDA-Public Use
  Company Number: IT-002147023-NVSC2020IT053359

PATIENT

DRUGS (1)
  1. OSILODROSTAT [Suspect]
     Active Substance: OSILODROSTAT
     Indication: Cushing^s syndrome
     Dosage: 1 MILLIGRAM, QD
     Route: 048
     Dates: start: 20191017, end: 20200206

REACTIONS (1)
  - ACTH-producing pituitary tumour [Recovered/Resolved]

NARRATIVE: CASE EVENT DATE: 20200207
